FAERS Safety Report 20626855 (Version 1)
Quarter: 2022Q1

REPORT INFORMATION
  Report Type: Spontaneous
  Country: CN (occurrence: CN)
  Receive Date: 20220323
  Receipt Date: 20220323
  Transmission Date: 20220423
  Serious: Yes (Other)
  Sender: FDA-Public Use
  Company Number: CN-BAXTER-2022BAX006179

PATIENT
  Age: 60 Year
  Sex: Female

DRUGS (5)
  1. CYCLOPHOSPHAMIDE [Suspect]
     Active Substance: CYCLOPHOSPHAMIDE
     Indication: Breast cancer female
     Dosage: CYCLOPHOSPHAMIDE (830 MG) + NS (45 ML), FIRST CHEMOTHERAPY
     Route: 042
     Dates: start: 20220209, end: 20220209
  2. SODIUM CHLORIDE [Suspect]
     Active Substance: SODIUM CHLORIDE
     Indication: Medication dilution
     Dosage: CYCLOPHOSPHAMIDE (830 MG) + NS (45 ML), FIRST CHEMOTHERAPY
     Route: 042
     Dates: start: 20220209, end: 20220209
  3. SODIUM CHLORIDE [Suspect]
     Active Substance: SODIUM CHLORIDE
     Dosage: EPIRUBICIN HYDROCHLORIDE (125 MG) + NS (100 ML), FIRST CHEMOTHERAPY
     Route: 041
     Dates: start: 20220209, end: 20220209
  4. EPIRUBICIN HYDROCHLORIDE [Suspect]
     Active Substance: EPIRUBICIN HYDROCHLORIDE
     Indication: Breast cancer female
     Dosage: EPIRUBICIN HYDROCHLORIDE (125 MG) + NS (100 ML), FIRST CHEMOTHERAPY
     Route: 041
     Dates: start: 20220209, end: 20220209
  5. Aiduo [Concomitant]
     Indication: Prophylaxis
     Dosage: ON THE THIRD DAY
     Route: 058
     Dates: start: 20220211

REACTIONS (2)
  - White blood cell count decreased [Recovered/Resolved]
  - Agranulocytosis [Recovered/Resolved]

NARRATIVE: CASE EVENT DATE: 20220216
